FAERS Safety Report 14617376 (Version 3)
Quarter: 2018Q2

REPORT INFORMATION
  Report Type: Report from Study
  Country: ID (occurrence: ID)
  Receive Date: 20180309
  Receipt Date: 20180619
  Transmission Date: 20180711
  Serious: Yes (Life-Threatening, Hospitalization, Other)
  Sender: FDA-Public Use
  Company Number: ID-BAYER-2018-011612

PATIENT
  Age: 73 Year
  Sex: Male

DRUGS (3)
  1. NEXAVAR [Suspect]
     Active Substance: SORAFENIB
     Indication: HEPATOCELLULAR CARCINOMA
     Dosage: DAILY DOSE 400 MG
     Route: 048
     Dates: end: 201804
  2. NEXAVAR [Suspect]
     Active Substance: SORAFENIB
     Indication: HEPATOCELLULAR CARCINOMA
     Dosage: DAILY DOSE 400 MG, (2X200 MG)
     Route: 048
     Dates: start: 20171215, end: 20180126
  3. NEXAVAR [Suspect]
     Active Substance: SORAFENIB
     Indication: HEPATOCELLULAR CARCINOMA
     Dosage: UNK
     Route: 048
     Dates: start: 20180201

REACTIONS (20)
  - Weight decreased [None]
  - Polyuria [None]
  - Muscle spasms [Not Recovered/Not Resolved]
  - Nausea [Recovered/Resolved]
  - Vomiting [Recovered/Resolved]
  - Ascites [Not Recovered/Not Resolved]
  - Faeces discoloured [Recovered/Resolved]
  - Weight decreased [Not Recovered/Not Resolved]
  - Platelet count decreased [Not Recovered/Not Resolved]
  - Muscle spasms [Not Recovered/Not Resolved]
  - Musculoskeletal stiffness [None]
  - Decreased appetite [Not Recovered/Not Resolved]
  - Feeling cold [Not Recovered/Not Resolved]
  - Coma [Recovered/Resolved]
  - Abdominal pain upper [Recovering/Resolving]
  - Frequent bowel movements [Recovering/Resolving]
  - Abdominal pain upper [Recovered/Resolved]
  - Haemoglobin decreased [Not Recovered/Not Resolved]
  - Diarrhoea [Not Recovered/Not Resolved]
  - Diarrhoea [Not Recovered/Not Resolved]

NARRATIVE: CASE EVENT DATE: 2018
